FAERS Safety Report 5079617-X (Version None)
Quarter: 2006Q3

REPORT INFORMATION
  Report Type: 
  Country: None (occurrence: None)
  Receive Date: 20060814
  Receipt Date: 20060811
  Transmission Date: 20061208
  Serious: Yes (Death, Hospitalization)
  Sender: FDA-Public Use
  Company Number: LS-BOEHRINGER INGELHEIM PHARMACEUTICALS, INC.-2006-BP-09362BP

PATIENT
  Sex: Male

DRUGS (3)
  1. VIRAMUNE [Suspect]
     Indication: HIV INFECTION
     Route: 048
     Dates: start: 20060524, end: 20060707
  2. STAVUDINE [Suspect]
     Indication: HIV INFECTION
     Route: 048
     Dates: start: 20060524, end: 20060707
  3. LAMIVUDINE [Suspect]
     Indication: HIV INFECTION
     Route: 048
     Dates: start: 20060524, end: 20060707

REACTIONS (5)
  - CHEST PAIN [None]
  - IMMUNE RECONSTITUTION SYNDROME [None]
  - PHARYNGEAL CANDIDIASIS [None]
  - RESPIRATORY DISTRESS [None]
  - TACHYPNOEA [None]
